FAERS Safety Report 5137120-2 (Version None)
Quarter: 2006Q4

REPORT INFORMATION
  Report Type: 
  Country: None (occurrence: None)
  Receive Date: 20061030
  Receipt Date: 20040602
  Transmission Date: 20070319
  Serious: No
  Sender: FDA-Public Use
  Company Number: US-GLAXOSMITHKLINE-A0513056A

PATIENT
  Age: 79 Year
  Sex: Female

DRUGS (5)
  1. ADVAIR HFA [Suspect]
     Indication: CHRONIC OBSTRUCTIVE PULMONARY DISEASE
     Dosage: 2PUFF TWICE PER DAY
     Route: 055
  2. ALBUTEROL [Concomitant]
  3. REMERON [Concomitant]
  4. MULTI-VITAMIN [Concomitant]
  5. GLUCOSAMINE CHONDRITIN [Concomitant]

REACTIONS (4)
  - DYSGEUSIA [None]
  - DYSPHONIA [None]
  - NASOPHARYNGITIS [None]
  - OVERDOSE [None]
